FAERS Safety Report 10060261 (Version 2)
Quarter: 2014Q2

REPORT INFORMATION
  Report Type: Report from Study
  Country: US (occurrence: US)
  Receive Date: 20140404
  Receipt Date: 20140404
  Transmission Date: 20141212
  Serious: Yes (Other)
  Sender: FDA-Public Use
  Company Number: US-SA-2014SA017695

PATIENT
  Age: 48 Year
  Sex: Female

DRUGS (1)
  1. AUBAGIO [Suspect]
     Indication: MULTIPLE SCLEROSIS
     Route: 048
     Dates: start: 20140122

REACTIONS (6)
  - Kidney infection [Unknown]
  - Multiple sclerosis [Not Recovered/Not Resolved]
  - Influenza like illness [Unknown]
  - Diarrhoea [Unknown]
  - Alopecia [Unknown]
  - Abdominal discomfort [Recovered/Resolved]
